FAERS Safety Report 8045321-9 (Version None)
Quarter: 2012Q1

REPORT INFORMATION
  Report Type: 
  Country: None (occurrence: None)
  Receive Date: 20120113
  Receipt Date: 20120110
  Transmission Date: 20120608
  Serious: No
  Sender: FDA-Public Use
  Company Number: US-TEVA-317104USA

PATIENT
  Sex: Female
  Weight: 59.928 kg

DRUGS (7)
  1. WELLBUTRIN [Concomitant]
     Indication: DEPRESSION
     Route: 048
  2. KLONOPIN [Concomitant]
     Indication: DEPRESSION
     Route: 048
  3. PLAN B ONE-STEP [Suspect]
     Indication: POST COITAL CONTRACEPTION
     Dosage: 1.5 MILLIGRAM;
     Route: 048
     Dates: start: 20120102, end: 20120102
  4. LOESTRIN 1.5/30 [Concomitant]
     Indication: CONTRACEPTION
     Route: 048
  5. PRISTIQ [Concomitant]
     Indication: DEPRESSION
     Route: 048
  6. WELLBUTRIN [Concomitant]
     Indication: ANXIETY
  7. KLONOPIN [Concomitant]
     Indication: ANXIETY

REACTIONS (1)
  - MENSTRUATION IRREGULAR [None]
